FAERS Safety Report 23422768 (Version 1)
Quarter: 2024Q1

REPORT INFORMATION
  Report Type: Other
  Country: US (occurrence: US)
  Receive Date: 20240119
  Receipt Date: 20240119
  Transmission Date: 20240409
  Serious: Yes (Hospitalization)
  Sender: FDA-Public Use
  Company Number: US-HLS-202400019

PATIENT
  Age: 35 Year
  Sex: Female

DRUGS (1)
  1. CLOZAPINE [Suspect]
     Active Substance: CLOZAPINE
     Indication: Schizoaffective disorder bipolar type
     Dosage: 100 MG QAM / 200 MG QHS
     Route: 065
     Dates: start: 20191205

REACTIONS (3)
  - Salivary hypersecretion [Unknown]
  - Drug effective for unapproved indication [Unknown]
  - Schizoaffective disorder bipolar type [Unknown]

NARRATIVE: CASE EVENT DATE: 20191209
